FAERS Safety Report 11910878 (Version 1)
Quarter: 2016Q1

REPORT INFORMATION
  Report Type: Spontaneous
  Country: US (occurrence: US)
  Receive Date: 20160112
  Receipt Date: 20160112
  Transmission Date: 20160526
  Serious: Yes (Hospitalization)
  Sender: FDA-Public Use
  Company Number: PHHY2015US172283

PATIENT
  Age: 24 Year
  Sex: Male

DRUGS (1)
  1. ERYTHROMYCIN. [Suspect]
     Active Substance: ERYTHROMYCIN
     Indication: UPPER RESPIRATORY TRACT INFECTION
     Route: 065

REACTIONS (1)
  - Stevens-Johnson syndrome [Recovering/Resolving]
